FAERS Safety Report 5503596-1 (Version None)
Quarter: 2007Q4

REPORT INFORMATION
  Report Type: 
  Country: None (occurrence: None)
  Receive Date: 20071029
  Receipt Date: 20071015
  Transmission Date: 20080405
  Serious: Yes (Other)
  Sender: FDA-Public Use
  Company Number: S07-POL-05596-01

PATIENT
  Age: 43 Year
  Sex: Female

DRUGS (1)
  1. MONURAL (FOSFOMYCIN TROMETAMOL) [Suspect]
     Dosage: 3 G ONCE;PO
     Route: 048
     Dates: start: 20070917, end: 20070917

REACTIONS (1)
  - HYPERSENSITIVITY [None]
